FAERS Safety Report 8090077-7 (Version None)
Quarter: 2012Q1

REPORT INFORMATION
  Report Type: 
  Country: None (occurrence: None)
  Receive Date: 20120129
  Receipt Date: 20111031
  Transmission Date: 20120608
  Serious: No
  Sender: FDA-Public Use
  Company Number: US-ABBOTT-11P-163-0869880-00

PATIENT
  Age: 74 Year
  Sex: Female

DRUGS (7)
  1. HUMIRA [Suspect]
     Indication: PSORIATIC ARTHROPATHY
     Dates: start: 20111016
  2. RECLAST [Concomitant]
     Indication: OSTEOPOROSIS
     Route: 042
  3. ULTRAM [Concomitant]
     Indication: ARTHRALGIA
     Dosage: 1-2 TABLETS DAILY AS NEEDED
  4. ZOLOFT [Concomitant]
     Indication: CRYING
     Dosage: SOMETIMES 1/2 TAB
  5. ASACOL [Concomitant]
     Indication: COLITIS ULCERATIVE
     Dosage: 2 TABS IN THE MORNING 2 TABS AT NIGHT
  6. NAPROXEN [Concomitant]
     Indication: INFLAMMATION
  7. LEVOTHYROXINE SODIUM [Concomitant]
     Indication: THYROID DISORDER

REACTIONS (1)
  - INJECTION SITE HAEMATOMA [None]
